FAERS Safety Report 5739299-8 (Version None)
Quarter: 2008Q2

REPORT INFORMATION
  Report Type: 
  Country: None (occurrence: None)
  Receive Date: 20080515
  Receipt Date: 20080507
  Transmission Date: 20081010
  Serious: Yes (Other)
  Sender: FDA-Public Use
  Company Number: US-JNJFOC-20080501597

PATIENT
  Sex: Male
  Weight: 65.77 kg

DRUGS (4)
  1. REMICADE [Suspect]
     Indication: CROHN'S DISEASE
  2. FERRIC ISO FORTE [Concomitant]
  3. FOSAMAX [Concomitant]
  4. IMURAN [Concomitant]

REACTIONS (1)
  - MEMORY IMPAIRMENT [None]
